FAERS Safety Report 16038116 (Version 5)
Quarter: 2020Q3

REPORT INFORMATION
  Report Type: Report from Study
  Country: US (occurrence: US)
  Receive Date: 20190305
  Receipt Date: 20200807
  Transmission Date: 20201102
  Serious: Yes (Hospitalization, Other)
  Sender: FDA-Public Use
  Company Number: US-ACTELION-A-NJ2018-165473

PATIENT
  Sex: Female
  Weight: 45.35 kg

DRUGS (4)
  1. TRACLEER [Suspect]
     Active Substance: BOSENTAN
     Indication: PULMONARY ARTERIAL HYPERTENSION
     Dosage: 125 MG, BID
     Route: 048
  2. COUMADIN [Concomitant]
     Active Substance: WARFARIN SODIUM
  3. OXYGEN. [Concomitant]
     Active Substance: OXYGEN
     Dosage: 2 L/MIN
  4. DILTIAZEM. [Concomitant]
     Active Substance: DILTIAZEM

REACTIONS (25)
  - Diabetes mellitus [Recovered/Resolved]
  - Nausea [Unknown]
  - Dizziness [Unknown]
  - Nasal congestion [Unknown]
  - Lethargy [Unknown]
  - Gallbladder disorder [Unknown]
  - Contusion [Unknown]
  - Illness [Unknown]
  - Presyncope [Unknown]
  - Road traffic accident [Unknown]
  - Thrombosis [Unknown]
  - Surgery [Unknown]
  - Blood glucose decreased [Recovered/Resolved]
  - Product dose omission issue [Unknown]
  - Mobility decreased [Unknown]
  - Neck pain [Unknown]
  - Productive cough [Unknown]
  - Ear discomfort [Unknown]
  - Weight decreased [Unknown]
  - Headache [Unknown]
  - Dry skin [Unknown]
  - Overdose [Unknown]
  - Facial pain [Unknown]
  - Sinus disorder [Unknown]
  - Feeling cold [Unknown]
